FAERS Safety Report 25107257 (Version 4)
Quarter: 2025Q2

REPORT INFORMATION
  Report Type: Spontaneous
  Country: GB (occurrence: GB)
  Receive Date: 20250321
  Receipt Date: 20250610
  Transmission Date: 20250717
  Serious: Yes (Other)
  Sender: Thea Pharma
  Company Number: GB-THEA-2025000550

PATIENT
  Age: 67 Year
  Sex: Male

DRUGS (3)
  1. LATANOPROST [Suspect]
     Active Substance: LATANOPROST
     Indication: Glaucoma
     Dates: start: 2024, end: 202502
  2. LATANOPROST [Suspect]
     Active Substance: LATANOPROST
     Indication: Glaucoma
     Dosage: ONE DROP NIGHT BEFORE GOING TO BED
     Dates: start: 20250228, end: 202503
  3. COSOPT [Suspect]
     Active Substance: DORZOLAMIDE HYDROCHLORIDE\TIMOLOL MALEATE
     Indication: Glaucoma
     Dosage: ONE DROP IN THE MORNING AND ONE DROP AT NIGHT
     Dates: start: 2024, end: 202502

REACTIONS (9)
  - Cataract [Unknown]
  - Palpitations [Recovered/Resolved]
  - Dry mouth [Recovered/Resolved]
  - Rhinorrhoea [Recovered/Resolved]
  - Sneezing [Recovered/Resolved]
  - Cardiac flutter [Recovered/Resolved]
  - Product after taste [Recovered/Resolved]
  - Product administration error [Unknown]
  - Incorrect dose administered [Unknown]

NARRATIVE: CASE EVENT DATE: 20241101
